FAERS Safety Report 13864616 (Version 1)
Quarter: 2017Q3

REPORT INFORMATION
  Report Type: Spontaneous
  Country: US (occurrence: None)
  Receive Date: 20170813
  Receipt Date: 20170813
  Transmission Date: 20171127
  Serious: No
  Sender: FDA-Public Use
  Company Number: None

PATIENT
  Age: 21 Year
  Sex: Male

DRUGS (1)
  1. INVEGA SUSTENNA [Suspect]
     Active Substance: PALIPERIDONE PALMITATE
     Indication: SCHIZOPHRENIA
     Dosage: FREQUENCY - EVERY 4 WEEKS?ROUTE - INJECT
     Dates: start: 20160626

REACTIONS (2)
  - Fatigue [None]
  - Increased appetite [None]

NARRATIVE: CASE EVENT DATE: 20170726
